FAERS Safety Report 24373261 (Version 2)
Quarter: 2024Q4

REPORT INFORMATION
  Report Type: Spontaneous
  Country: US (occurrence: US)
  Receive Date: 20240927
  Receipt Date: 20241004
  Transmission Date: 20250115
  Serious: Yes (Death, Life-Threatening, Other)
  Sender: PFIZER
  Company Number: US-PFIZER INC-PV202400125440

PATIENT
  Sex: Male

DRUGS (1)
  1. METHOTREXATE SODIUM [Suspect]
     Active Substance: METHOTREXATE SODIUM
     Indication: Psoriatic arthropathy
     Dosage: 2.5 MG, DAILY, SIX DAYS PER WEEK FOR AT LEAST A FEW MONTHS

REACTIONS (5)
  - Incorrect dose administered [Fatal]
  - Multiple organ dysfunction syndrome [Fatal]
  - Epidermal necrosis [Unknown]
  - Skin atrophy [Unknown]
  - Off label use [Unknown]
